FAERS Safety Report 17538970 (Version 1)
Quarter: 2020Q1

REPORT INFORMATION
  Report Type: Spontaneous
  Country: US (occurrence: US)
  Receive Date: 20200306
  Receipt Date: 20200306
  Transmission Date: 20200409
  Serious: Yes (Hospitalization)
  Sender: FDA-Public Use
  Company Number: None

PATIENT
  Age: 75 Year
  Sex: Female

DRUGS (19)
  1. AMBRISENTAN 10MG TAB [Suspect]
     Active Substance: AMBRISENTAN
     Indication: PULMONARY ARTERIAL HYPERTENSION
     Dosage: ?          OTHER DOSE:1 TAB;?
     Route: 048
     Dates: start: 20180426
  2. FLONASE ALGY [Concomitant]
  3. SPIRIVA [Concomitant]
     Active Substance: TIOTROPIUM BROMIDE MONOHYDRATE
  4. ADEMPAS [Concomitant]
     Active Substance: RIOCIGUAT
  5. CALCIUM CIT/VIT D [Concomitant]
  6. RALOXIFENE. [Concomitant]
     Active Substance: RALOXIFENE
  7. RANITIDINE. [Concomitant]
     Active Substance: RANITIDINE
  8. ALEVE [Concomitant]
     Active Substance: NAPROXEN SODIUM
  9. ASPIRIN. [Concomitant]
     Active Substance: ASPIRIN
  10. MULTIVITAMIN [Concomitant]
     Active Substance: VITAMINS
  11. ORENITRAM [Concomitant]
     Active Substance: TREPROSTINIL
  12. OXYBUTYNIN. [Concomitant]
     Active Substance: OXYBUTYNIN CHLORIDE
  13. ADVAIR DISKU AER [Concomitant]
  14. FISH OIL [Concomitant]
     Active Substance: FISH OIL
  15. GLUCOSAMINE [Concomitant]
     Active Substance: GLUCOSAMINE
  16. LIPITOR [Concomitant]
     Active Substance: ATORVASTATIN CALCIUM
  17. GARLIC. [Concomitant]
     Active Substance: GARLIC
  18. GINGKO BILOB [Concomitant]
  19. SERTRALINE [Concomitant]
     Active Substance: SERTRALINE HYDROCHLORIDE

REACTIONS (1)
  - Fall [None]

NARRATIVE: CASE EVENT DATE: 20200305
